FAERS Safety Report 6943630-5 (Version None)
Quarter: 2010Q3

REPORT INFORMATION
  Report Type: 
  Country: None (occurrence: None)
  Receive Date: 20100826
  Receipt Date: 20100813
  Transmission Date: 20110219
  Serious: Yes (Other)
  Sender: FDA-Public Use
  Company Number: PHHY2010US52238

PATIENT
  Sex: Female
  Weight: 168 kg

DRUGS (5)
  1. RECLAST [Suspect]
     Indication: OSTEOPENIA
     Dosage: 05 MG/ 100 ML
     Route: 042
     Dates: start: 20100804
  2. PREMPRO [Concomitant]
     Indication: HORMONE REPLACEMENT THERAPY
     Dosage: 0.625/ 5 MG DAILY
     Route: 048
     Dates: end: 20100609
  3. MULTI-VITAMINS [Concomitant]
     Dosage: DAILY
     Route: 048
  4. CALCIUM [Concomitant]
     Indication: OSTEOPENIA
     Dosage: 100 MG DAILY
     Route: 048
  5. VITAMIN D [Concomitant]
     Dosage: 200 MG DAILY
     Route: 048

REACTIONS (5)
  - DYSPNOEA [None]
  - MUSCLE STRAIN [None]
  - MYALGIA [None]
  - NON-CARDIAC CHEST PAIN [None]
  - SINUS BRADYCARDIA [None]
